FAERS Safety Report 6454780-4 (Version None)
Quarter: 2009Q4

REPORT INFORMATION
  Report Type: 
  Country: None (occurrence: None)
  Receive Date: 20091118
  Receipt Date: 20091111
  Transmission Date: 20100525
  Serious: Yes (Death)
  Sender: FDA-Public Use
  Company Number: 2009110612

PATIENT
  Age: 17 Year
  Sex: Female

DRUGS (1)
  1. VOLUVEN [Suspect]
     Indication: SURGERY
     Dosage: 500 ML, INTRAVENOUS BOLUS
     Route: 040

REACTIONS (3)
  - ARRHYTHMIA [None]
  - BLOOD POTASSIUM INCREASED [None]
  - CRIME [None]
